FAERS Safety Report 13073993 (Version 1)
Quarter: 2016Q4

REPORT INFORMATION
  Report Type: Report from Study
  Country: BR (occurrence: BR)
  Receive Date: 20161229
  Receipt Date: 20161229
  Transmission Date: 20170207
  Serious: Yes (Other)
  Sender: FDA-Public Use
  Company Number: ALCN2016BR009783

PATIENT
  Sex: Female
  Weight: 76 kg

DRUGS (2)
  1. VITALUX PLUS [Suspect]
     Active Substance: VITAMINS
     Indication: RETINAL DISORDER
     Dosage: 1 DF, QD
     Route: 065
     Dates: start: 2014
  2. GLIFAGE [Concomitant]
     Active Substance: METFORMIN HYDROCHLORIDE
     Indication: DIABETES MELLITUS
     Route: 065

REACTIONS (2)
  - Retinal detachment [Recovering/Resolving]
  - Visual acuity reduced [Unknown]
